FAERS Safety Report 5117675-4 (Version None)
Quarter: 2006Q3

REPORT INFORMATION
  Report Type: 
  Country: None (occurrence: None)
  Receive Date: 20060926
  Receipt Date: 20060404
  Transmission Date: 20061208
  Serious: Yes (Other)
  Sender: FDA-Public Use
  Company Number: CHNY2006DE01242

PATIENT
  Age: 36 Year
  Sex: Female
  Weight: 50 kg

DRUGS (1)
  1. FENISTIL PENCIVIR BEI LIPPENHERPES         (PENCICLOVIR) CREAM [Suspect]
     Indication: HERPES SIMPLEX
     Dosage: TOPICAL
     Route: 061
     Dates: start: 20060307, end: 20060310

REACTIONS (3)
  - ERYTHEMA [None]
  - IMPAIRED HEALING [None]
  - SCAR [None]
